FAERS Safety Report 17729535 (Version 1)
Quarter: 2020Q2

REPORT INFORMATION
  Report Type: Spontaneous
  Country: TR (occurrence: TR)
  Receive Date: 20200430
  Receipt Date: 20200430
  Transmission Date: 20200714
  Serious: Yes (Life-Threatening, Other)
  Sender: FDA-Public Use
  Company Number: TR-STRIDES ARCOLAB LIMITED-2020SP005240

PATIENT
  Age: 54 Year
  Sex: Female

DRUGS (3)
  1. DOXAZOSIN [Suspect]
     Active Substance: DOXAZOSIN MESYLATE
     Indication: PRODUCT USED FOR UNKNOWN INDICATION
     Dosage: 120 MILLIGRAM,UNK
     Route: 048
  2. CAPTOPRIL. [Suspect]
     Active Substance: CAPTOPRIL
     Indication: PRODUCT USED FOR UNKNOWN INDICATION
     Dosage: 1000 MILLIGRAM, UNK
     Route: 048
  3. AMLODIPINE [Suspect]
     Active Substance: AMLODIPINE BESYLATE
     Indication: PRODUCT USED FOR UNKNOWN INDICATION
     Dosage: 300 MILLIGRAM, UNK, IMMEDIATE RELEASE FORM
     Route: 048

REACTIONS (6)
  - Suicidal ideation [Unknown]
  - Overdose [Unknown]
  - Hypotension [Recovered/Resolved]
  - Tachycardia [Recovered/Resolved]
  - Toxicity to various agents [Unknown]
  - Rhonchi [Unknown]
